FAERS Safety Report 5958981-0 (Version None)
Quarter: 2008Q4

REPORT INFORMATION
  Report Type: 
  Country: None (occurrence: None)
  Receive Date: 20081117
  Receipt Date: 20081031
  Transmission Date: 20090506
  Serious: Yes (Other)
  Sender: FDA-Public Use
  Company Number: 2008BI028916

PATIENT
  Age: 65 Year
  Sex: Male

DRUGS (2)
  1. ZEVALIN [Suspect]
     Indication: NON-HODGKIN'S LYMPHOMA
     Dosage: 32 MCI; 1X; IV
     Route: 042
     Dates: start: 20080201, end: 20080201
  2. RITUXAN [Concomitant]

REACTIONS (7)
  - ERYTHEMA [None]
  - FEELING HOT [None]
  - INFUSION SITE EXTRAVASATION [None]
  - INFUSION SITE ULCER [None]
  - PAIN [None]
  - SKIN EXFOLIATION [None]
  - SKIN NECROSIS [None]
